FAERS Safety Report 10378185 (Version 1)
Quarter: 2014Q3

REPORT INFORMATION
  Report Type: Spontaneous
  Country: CN (occurrence: CN)
  Receive Date: 20140812
  Receipt Date: 20140812
  Transmission Date: 20150326
  Serious: Yes (Other)
  Sender: FDA-Public Use
  Company Number: CN-PFIZER INC-2014219614

PATIENT

DRUGS (1)
  1. VIAGRA [Suspect]
     Active Substance: SILDENAFIL CITRATE
     Dosage: UNK
     Route: 050

REACTIONS (4)
  - Asthenia [Unknown]
  - Pneumonia [Unknown]
  - Cyanosis [Unknown]
  - Exposure via father [Unknown]

NARRATIVE: CASE EVENT DATE: 2014
